FAERS Safety Report 25238982 (Version 2)
Quarter: 2025Q2

REPORT INFORMATION
  Report Type: Spontaneous
  Country: US (occurrence: US)
  Receive Date: 20250425
  Receipt Date: 20250509
  Transmission Date: 20250717
  Serious: No
  Sender: VIIV
  Company Number: US-VIIV HEALTHCARE-US2025AMR048626

PATIENT
  Sex: Male

DRUGS (10)
  1. ABACAVIR [Suspect]
     Active Substance: ABACAVIR
     Indication: HIV infection
  2. ZIDOVUDINE [Suspect]
     Active Substance: ZIDOVUDINE
     Indication: HIV infection
     Dates: start: 1992
  3. RUKOBIA [Suspect]
     Active Substance: FOSTEMSAVIR TROMETHAMINE
     Indication: HIV infection
     Dosage: 600 MG, BID
     Route: 048
     Dates: start: 202410
  4. DIDANOSINE [Suspect]
     Active Substance: DIDANOSINE
     Indication: HIV infection
  5. STAVUDINE [Suspect]
     Active Substance: STAVUDINE
     Indication: HIV infection
  6. SAQUINAVIR [Suspect]
     Active Substance: SAQUINAVIR
     Indication: HIV infection
  7. KALETRA [Suspect]
     Active Substance: LOPINAVIR\RITONAVIR
     Indication: HIV infection
  8. EDURANT [Suspect]
     Active Substance: RILPIVIRINE HYDROCHLORIDE
     Indication: HIV infection
  9. LOPINAVIR\RITONAVIR [Suspect]
     Active Substance: LOPINAVIR\RITONAVIR
     Indication: HIV infection
     Dates: start: 1995
  10. ATAZANAVIR [Concomitant]
     Active Substance: ATAZANAVIR
     Indication: Product used for unknown indication
     Dosage: 300 MG, QD
     Dates: start: 202410

REACTIONS (1)
  - Pathogen resistance [Recovered/Resolved]
